FAERS Safety Report 7056280-X (Version None)
Quarter: 2010Q4

REPORT INFORMATION
  Report Type: 
  Country: None (occurrence: None)
  Receive Date: 20101018
  Receipt Date: 20101013
  Transmission Date: 20110411
  Serious: Yes (Other)
  Sender: FDA-Public Use
  Company Number: 2010SP054803

PATIENT
  Age: 59 Year
  Sex: Female

DRUGS (1)
  1. ORMIGREIN (ORMIGREIN/01755201/) [Suspect]
     Indication: MIGRAINE
     Dosage: PO
     Route: 048
     Dates: start: 19780101

REACTIONS (1)
  - DRUG DEPENDENCE [None]
